FAERS Safety Report 5189066-1 (Version None)
Quarter: 2006Q4

REPORT INFORMATION
  Report Type: 
  Country: None (occurrence: None)
  Receive Date: 20061215
  Receipt Date: 20061129
  Transmission Date: 20070319
  Serious: Yes (Other)
  Sender: FDA-Public Use
  Company Number: 2006BM000177

PATIENT
  Age: 49 Year
  Sex: Male

DRUGS (3)
  1. PREDNISOLONE [Suspect]
     Dosage: QD ; 30 MG QD ; QD
     Dates: start: 19820101, end: 19900101
  2. PREDNISOLONE [Suspect]
     Dosage: QD ; 30 MG QD ; QD
     Dates: start: 19900101, end: 19920101
  3. PREDNISOLONE [Suspect]
     Dosage: QD ; 30 MG QD ; QD

REACTIONS (4)
  - CHORIORETINOPATHY [None]
  - MACULAR RUPTURE [None]
  - RETINAL DETACHMENT [None]
  - SCOTOMA [None]
